FAERS Safety Report 12875398 (Version 1)
Quarter: 2016Q4

REPORT INFORMATION
  Report Type: Spontaneous
  Country: CN (occurrence: CN)
  Receive Date: 20161024
  Receipt Date: 20161024
  Transmission Date: 20170207
  Serious: Yes (Other)
  Sender: FDA-Public Use
  Company Number: CN-BAXTER-2016BAX052146

PATIENT
  Age: 60 Year
  Sex: Female
  Weight: 58 kg

DRUGS (2)
  1. 20% MANNITOL INJECTION [Suspect]
     Active Substance: MANNITOL
     Indication: TIBIA FRACTURE
     Route: 041
     Dates: start: 20160423, end: 20160423
  2. 20% MANNITOL INJECTION [Suspect]
     Active Substance: MANNITOL
     Indication: OFF LABEL USE

REACTIONS (2)
  - Rash erythematous [Recovered/Resolved]
  - Pruritus [Recovering/Resolving]

NARRATIVE: CASE EVENT DATE: 20160423
